FAERS Safety Report 9187042 (Version 1)
Quarter: 2012Q4

REPORT INFORMATION
  Report Type: 
  Country: CR (occurrence: CR)
  Receive Date: 20121031
  Receipt Date: 20121031
  Transmission Date: 20130627
  Serious: Yes (Hospitalization, Other)
  Sender: FDA-Public Use
  Company Number: CR-JNJFOC-20121013465

PATIENT
  Age: 28 Year
  Sex: Male
  Weight: 72 kg

DRUGS (2)
  1. RISPERDAL CONSTA [Suspect]
     Indication: BIPOLAR DISORDER
     Dosage: a year ago
     Route: 030
     Dates: start: 2010, end: 2011
  2. RISPERDAL CONSTA [Suspect]
     Indication: BIPOLAR DISORDER
     Route: 030
     Dates: start: 2011, end: 20120930

REACTIONS (2)
  - Extrapyramidal disorder [Recovering/Resolving]
  - Cavernous sinus thrombosis [Unknown]
